FAERS Safety Report 24252375 (Version 4)
Quarter: 2025Q3

REPORT INFORMATION
  Report Type: Report from Study
  Country: US (occurrence: US)
  Receive Date: 20240827
  Receipt Date: 20250810
  Transmission Date: 20251021
  Serious: No
  Sender: ALEXION PHARMACEUTICALS
  Company Number: US-AstraZeneca-CH-00689898A

PATIENT
  Sex: Male

DRUGS (1)
  1. SOLIRIS [Suspect]
     Active Substance: ECULIZUMAB
     Indication: Myasthenia gravis

REACTIONS (7)
  - Myalgia [Unknown]
  - Muscular weakness [Unknown]
  - Dysphagia [Unknown]
  - Stress [Unknown]
  - Musculoskeletal stiffness [Unknown]
  - Glycosylated haemoglobin abnormal [Unknown]
  - Blood test abnormal [Unknown]
